FAERS Safety Report 5444189-4 (Version None)
Quarter: 2007Q3

REPORT INFORMATION
  Report Type: 
  Country: None (occurrence: None)
  Receive Date: 20070831
  Receipt Date: 20070817
  Transmission Date: 20080115
  Serious: Yes (Hospitalization, Other)
  Sender: FDA-Public Use
  Company Number: THQ2007A00712

PATIENT
  Age: 74 Year
  Sex: Male

DRUGS (9)
  1. PIOGLITAZONE HCL [Suspect]
     Indication: TYPE 2 DIABETES MELLITUS
     Dosage: 45 MG (45 MG, 1 IN 1 D) PER ORAL
     Route: 048
     Dates: start: 20030611, end: 20040325
  2. PREVACID [Concomitant]
  3. LOPRESSOR [Concomitant]
  4. COLCHICINE [Concomitant]
  5. LIPITOR [Concomitant]
  6. ELAVIL [Concomitant]
  7. PLAVIX [Concomitant]
  8. PENTASA [Concomitant]
  9. DIABETA [Concomitant]

REACTIONS (1)
  - CEREBROVASCULAR ACCIDENT [None]
